FAERS Safety Report 6862584-3 (Version None)
Quarter: 2010Q3

REPORT INFORMATION
  Report Type: 
  Country: None (occurrence: None)
  Receive Date: 20100721
  Receipt Date: 20100709
  Transmission Date: 20110219
  Serious: Yes (Death)
  Sender: FDA-Public Use
  Company Number: US-ELI_LILLY_AND_COMPANY-US201007002715

PATIENT
  Age: 74 Year
  Sex: Male

DRUGS (1)
  1. FORTEO [Suspect]

REACTIONS (1)
  - NEOPLASM MALIGNANT [None]
